FAERS Safety Report 4618165-5 (Version None)
Quarter: 2005Q1

REPORT INFORMATION
  Report Type: 
  Country: None (occurrence: None)
  Receive Date: 20050322
  Receipt Date: 20050315
  Transmission Date: 20050727
  Serious: Yes (Hospitalization)
  Sender: FDA-Public Use
  Company Number: 2004221043US

PATIENT
  Age: 74 Year
  Sex: Female
  Weight: 73.9363 kg

DRUGS (14)
  1. EXEMESTANE [Suspect]
     Indication: BREAST CANCER
     Dosage: 25 MG, QD (25 MG, 1 IN 1 D), ORAL
     Route: 048
     Dates: start: 20020731, end: 20040625
  2. ASPIRIN [Concomitant]
  3. ATENOLOL [Concomitant]
  4. PRAVASTATIN SODIUM [Concomitant]
  5. AMLODIPINE  BESILAT (AMLODIPINE BESILATE) [Concomitant]
  6. CHLORTALIDONE (CHLORTALIDONE) [Concomitant]
  7. VENLAFAXINE HCL [Concomitant]
  8. HYDROCHLOROTHIAZIDE [Concomitant]
  9. METOPROLOL TARTRATE [Concomitant]
  10. DILTIAZEM HYDROCHLORIDE [Concomitant]
  11. LOTREL [Concomitant]
  12. ALENDRONATE SODIUM [Concomitant]
  13. POTASSIUM CHLORIDE [Concomitant]
  14. CALCIUM CARBONATE (CALCIUM CARBONATE) [Concomitant]

REACTIONS (4)
  - HEART RATE DECREASED [None]
  - LABILE HYPERTENSION [None]
  - OEDEMA PERIPHERAL [None]
  - PULMONARY EMBOLISM [None]
